FAERS Safety Report 20583170 (Version 3)
Quarter: 2022Q2

REPORT INFORMATION
  Report Type: Spontaneous
  Country: DE (occurrence: DE)
  Receive Date: 20220311
  Receipt Date: 20220418
  Transmission Date: 20220720
  Serious: Yes (Life-Threatening, Hospitalization, Other)
  Sender: FDA-Public Use
  Company Number: DE-DCGMA-22197054

PATIENT
  Age: 79 Year
  Sex: Female
  Weight: 85 kg

DRUGS (16)
  1. METHOTREXATE SODIUM [Suspect]
     Active Substance: METHOTREXATE SODIUM
     Indication: Rheumatoid arthritis
     Dosage: 10 MG, WEEKLY FOR YEARS (BEFORE 18JAN2022)
     Route: 048
     Dates: end: 20220117
  2. METHOTREXATE SODIUM [Suspect]
     Active Substance: METHOTREXATE SODIUM
     Dosage: 10 MG, 1X/DAY
     Route: 048
     Dates: start: 20220118, end: 20220125
  3. FOLIC ACID [Suspect]
     Active Substance: FOLIC ACID
     Indication: Rheumatoid arthritis
     Dosage: 5 MG, WEEKLY ONE DAY AFTER MTX
     Dates: end: 20220118
  4. FOLIC ACID [Suspect]
     Active Substance: FOLIC ACID
     Dosage: 5 MG, DAILY
     Route: 048
     Dates: start: 20220119, end: 20220201
  5. ACETAMINOPHEN [Concomitant]
     Active Substance: ACETAMINOPHEN
     Indication: Postoperative analgesia
     Dosage: 500 MG, 4X/DAY
     Route: 048
     Dates: start: 20220118, end: 20220201
  6. PANTOPRAZOLE [Concomitant]
     Active Substance: PANTOPRAZOLE
     Indication: Gastritis prophylaxis
     Dosage: 40 MG, 1X/DAY
     Route: 048
     Dates: start: 20220118, end: 20220201
  7. PANTOPRAZOLE [Concomitant]
     Active Substance: PANTOPRAZOLE
     Indication: Prophylaxis against gastrointestinal ulcer
  8. ENOXAPARIN [Concomitant]
     Active Substance: ENOXAPARIN
     Dosage: 40 MG, 2X/DAY
  9. ENOXAPARIN [Concomitant]
     Active Substance: ENOXAPARIN
     Dosage: 20 MG, 2X/DAY (DOSE REDUCED TO 20 MG, 1 - 0 - 1)
  10. AMPICILLIN SODIUM\SULBACTAM SODIUM [Concomitant]
     Active Substance: AMPICILLIN SODIUM\SULBACTAM SODIUM
     Indication: Antibiotic prophylaxis
     Dosage: 3 G, 3X/DAY
     Route: 042
     Dates: start: 20220117, end: 20220126
  11. METAMIZOL [Concomitant]
     Active Substance: METAMIZOLE SODIUM
     Dosage: 500 MG (WEEKS TO MONTHS PRE-OPERATIVELY)
     Route: 048
  12. MEROPENEM [Concomitant]
     Active Substance: MEROPENEM
     Indication: Antibiotic prophylaxis
     Dosage: 1 G, 3X/DAY
     Route: 042
     Dates: start: 20220127, end: 20220201
  13. IBUPROFEN [Concomitant]
     Active Substance: IBUPROFEN
     Indication: Postoperative analgesia
     Dosage: 600 MG, 4X/DAY
     Route: 048
     Dates: start: 20220118, end: 20220123
  14. MOXONIDINE [Concomitant]
     Active Substance: MOXONIDINE
     Dosage: 0.2 MG, 1X/DAY (0.5 - 0 - 0)
  15. BISOPROLOL [Concomitant]
     Active Substance: BISOPROLOL
     Dosage: 2.5 MG, 1X/DAY
  16. METAMIZOL [Concomitant]
     Active Substance: METAMIZOLE SODIUM
     Indication: Postoperative analgesia
     Dosage: 1000 MG, 4X/DAY
     Route: 048
     Dates: start: 20220119, end: 20220126

REACTIONS (16)
  - Pancytopenia [Unknown]
  - Oral mucosal blistering [Unknown]
  - Rash pruritic [Unknown]
  - Oral mucosal erythema [Unknown]
  - Post procedural contusion [Unknown]
  - Accidental overdose [Unknown]
  - Product prescribing error [Unknown]
  - Inappropriate schedule of product administration [Unknown]
  - Knee arthroplasty [Unknown]
  - Toxic epidermal necrolysis [Recovering/Resolving]
  - Toxicity to various agents [Unknown]
  - Skin haemorrhage [Recovering/Resolving]
  - Erysipelas [Unknown]
  - Drug hypersensitivity [Unknown]
  - Feeding disorder [Not Recovered/Not Resolved]
  - Gastrointestinal pain [Not Recovered/Not Resolved]

NARRATIVE: CASE EVENT DATE: 20220101
